FAERS Safety Report 18712444 (Version 3)
Quarter: 2022Q2

REPORT INFORMATION
  Report Type: Report from Study
  Country: IN (occurrence: IN)
  Receive Date: 20210107
  Receipt Date: 20220420
  Transmission Date: 20220720
  Serious: Yes (Death, Hospitalization, Other)
  Sender: FDA-Public Use
  Company Number: IN-002147023-NVSC2020IN217308

PATIENT

DRUGS (1)
  1. RUXOLITINIB [Suspect]
     Active Substance: RUXOLITINIB
     Indication: Myelofibrosis
     Dosage: 20 MG, BID
     Route: 048
     Dates: start: 20200715, end: 20220117

REACTIONS (6)
  - Cerebral thrombosis [Fatal]
  - Pyrexia [Unknown]
  - Haemoglobin decreased [Unknown]
  - Hepatic infection [Not Recovered/Not Resolved]
  - Epistaxis [Unknown]
  - Asthenia [Not Recovered/Not Resolved]

NARRATIVE: CASE EVENT DATE: 20200731
